FAERS Safety Report 13292536 (Version 2)
Quarter: 2017Q1

REPORT INFORMATION
  Report Type: Spontaneous
  Country: SE (occurrence: SE)
  Receive Date: 20170303
  Receipt Date: 20170308
  Transmission Date: 20170428
  Serious: Yes (Other)
  Sender: FDA-Public Use
  Company Number: SE-JNJFOC-20170301775

PATIENT
  Age: 69 Year
  Sex: Male

DRUGS (3)
  1. HALDOL [Suspect]
     Active Substance: HALOPERIDOL
     Indication: PSYCHOTIC DISORDER
     Route: 065
  2. CISORDINOL ACUTARD [Suspect]
     Active Substance: ZUCLOPENTHIXOL ACETATE
     Indication: PSYCHOTIC DISORDER
     Route: 065
  3. LORAZEPAM. [Suspect]
     Active Substance: LORAZEPAM
     Indication: PSYCHOTIC DISORDER
     Route: 065

REACTIONS (3)
  - Toxicity to various agents [Recovered/Resolved]
  - Acute kidney injury [Recovered/Resolved]
  - Hypovolaemia [Recovered/Resolved]

NARRATIVE: CASE EVENT DATE: 20170214
